FAERS Safety Report 15884792 (Version 3)
Quarter: 2019Q2

REPORT INFORMATION
  Report Type: Spontaneous
  Country: JP (occurrence: JP)
  Receive Date: 20190129
  Receipt Date: 20190624
  Transmission Date: 20190711
  Serious: Yes (Other)
  Sender: FDA-Public Use
  Company Number: JP-PFIZER INC-2019032528

PATIENT
  Age: 21 Year
  Sex: Female

DRUGS (2)
  1. WYPAX 0.5 [Suspect]
     Active Substance: LORAZEPAM
     Dosage: 0.5 MG, 4X/DAY
     Route: 048
  2. ZYPREXA [Suspect]
     Active Substance: OLANZAPINE
     Dosage: UNK
     Route: 048

REACTIONS (5)
  - Off label use [Unknown]
  - Strabismus [Unknown]
  - Feeling abnormal [Unknown]
  - Parkinsonism [Unknown]
  - Product use issue [Unknown]
